FAERS Safety Report 19002430 (Version 1)
Quarter: 2021Q1

REPORT INFORMATION
  Report Type: Spontaneous
  Country: CA (occurrence: CA)
  Receive Date: 20210312
  Receipt Date: 20210312
  Transmission Date: 20210420
  Serious: Yes (Other)
  Sender: FDA-Public Use
  Company Number: CA-JNJFOC-20191012792

PATIENT
  Age: 76 Year
  Sex: Male

DRUGS (2)
  1. IMODIUM [Suspect]
     Active Substance: LOPERAMIDE HYDROCHLORIDE
     Indication: PRODUCT USED FOR UNKNOWN INDICATION
     Route: 065
  2. INPERSOL W/DEXTROSE [Concomitant]
     Route: 033

REACTIONS (5)
  - Constipation [Unknown]
  - Peripheral swelling [Unknown]
  - Swelling [Unknown]
  - Peritonitis [Unknown]
  - Diarrhoea [Unknown]
